FAERS Safety Report 9403278 (Version 1)
Quarter: 2013Q3

REPORT INFORMATION
  Report Type: Spontaneous
  Country: NL (occurrence: None)
  Receive Date: 20130712
  Receipt Date: 20130712
  Transmission Date: 20140515
  Serious: Yes (Hospitalization)
  Sender: FDA-Public Use
  Company Number: 2013AP006513

PATIENT
  Age: 60 Year
  Sex: Male

DRUGS (5)
  1. OLANZAPINE [Suspect]
     Indication: BIPOLAR I DISORDER
     Route: 048
  2. PRAMIPEXOLE [Suspect]
     Indication: RESTLESS LEGS SYNDROME
  3. MIRTAZAPINE (MIRTAZAPINE) [Concomitant]
  4. LITHIUM (LITHIUM) [Concomitant]
  5. PRAXITEN PLIVA (OXAZEPAM) (OXAZEPAM) [Suspect]
     Indication: BIPOLAR I DISORDER

REACTIONS (5)
  - Mania [None]
  - Drug interaction [None]
  - Renal transplant [None]
  - Bipolar I disorder [None]
  - Tremor [None]
